FAERS Safety Report 10531762 (Version 2)
Quarter: 2014Q4

REPORT INFORMATION
  Report Type: Report from Study
  Country: CA (occurrence: CA)
  Receive Date: 20141021
  Receipt Date: 20141021
  Transmission Date: 20150529
  Serious: Yes (Other)
  Sender: FDA-Public Use
  Company Number: CA-AMGEN-CANSP2013091631

PATIENT
  Age: 74 Year
  Sex: Female

DRUGS (11)
  1. PROLIA [Suspect]
     Active Substance: DENOSUMAB
     Indication: OSTEOPOROSIS POSTMENOPAUSAL
     Dosage: 60 MG, Q6MO
     Route: 058
     Dates: start: 20130128
  2. ATENOLOL. [Concomitant]
     Active Substance: ATENOLOL
  3. CRESTOR [Concomitant]
     Active Substance: ROSUVASTATIN CALCIUM
  4. COD LIVER OIL [Concomitant]
     Active Substance: COD LIVER OIL
  5. TYLENOL [Concomitant]
     Active Substance: ACETAMINOPHEN
  6. ENSURE                             /07499801/ [Concomitant]
  7. TUMS                               /07357001/ [Concomitant]
  8. VITAMIN D                          /00107901/ [Concomitant]
     Active Substance: ERGOCALCIFEROL
  9. ZOMIG [Suspect]
     Active Substance: ZOLMITRIPTAN
     Indication: MIGRAINE
     Route: 065
  10. TECTA [Concomitant]
     Active Substance: PANTOPRAZOLE MAGNESIUM
  11. CALCIUM [Suspect]
     Active Substance: CALCIUM
     Indication: BLOOD CALCIUM ABNORMAL
     Route: 065

REACTIONS (9)
  - Influenza [Unknown]
  - Cataract [Unknown]
  - Weight decreased [Unknown]
  - Nausea [Unknown]
  - Migraine [Unknown]
  - Palpitations [Unknown]
  - Breast mass [Unknown]
  - Pain [Unknown]
  - Malaise [Unknown]

NARRATIVE: CASE EVENT DATE: 20131230
